FAERS Safety Report 9644237 (Version 1)
Quarter: 2013Q4

REPORT INFORMATION
  Report Type: Report from Study
  Country: AR (occurrence: AR)
  Receive Date: 20131024
  Receipt Date: 20131024
  Transmission Date: 20140711
  Serious: Yes (Hospitalization, Other)
  Sender: FDA-Public Use
  Company Number: AR-US-EMD SERONO, INC.-7244887

PATIENT
  Sex: Female

DRUGS (2)
  1. REBIF [Suspect]
     Indication: MULTIPLE SCLEROSIS
     Dates: start: 20030401, end: 2013
  2. REBIF [Suspect]
     Dates: start: 2013

REACTIONS (2)
  - Gallbladder disorder [Recovered/Resolved]
  - Hepatitis toxic [Unknown]
